FAERS Safety Report 13788039 (Version 1)
Quarter: 2017Q3

REPORT INFORMATION
  Report Type: Spontaneous
  Country: US (occurrence: US)
  Receive Date: 20170725
  Receipt Date: 20170725
  Transmission Date: 20171127
  Serious: No
  Sender: FDA-Public Use
  Company Number: US-JNJFOC-20170621661

PATIENT
  Age: 70 Year
  Sex: Male
  Weight: 88.45 kg

DRUGS (4)
  1. MOTRIN IB [Suspect]
     Active Substance: IBUPROFEN
     Indication: MUSCULOSKELETAL CHEST PAIN
     Dosage: ABOUT 5 OF THE TABLETS IN A 7 HOUR PERIOD
     Route: 048
     Dates: start: 20170621, end: 20170621
  2. MOTRIN IB [Suspect]
     Active Substance: IBUPROFEN
     Indication: MUSCULOSKELETAL CHEST PAIN
     Route: 048
     Dates: start: 20170620
  3. MOTRIN IB [Suspect]
     Active Substance: IBUPROFEN
     Indication: MUSCULOSKELETAL PAIN
     Route: 048
     Dates: start: 20170620
  4. MOTRIN IB [Suspect]
     Active Substance: IBUPROFEN
     Indication: MUSCULOSKELETAL PAIN
     Dosage: ABOUT 5 OF THE TABLETS IN A 7 HOUR PERIOD
     Route: 048
     Dates: start: 20170621, end: 20170621

REACTIONS (2)
  - Paraesthesia [Unknown]
  - Extra dose administered [Unknown]

NARRATIVE: CASE EVENT DATE: 20170621
